FAERS Safety Report 6327950-3 (Version None)
Quarter: 2009Q3

REPORT INFORMATION
  Report Type: 
  Country: None (occurrence: None)
  Receive Date: 20090825
  Receipt Date: 20080805
  Transmission Date: 20100115
  Serious: No
  Sender: FDA-Public Use
  Company Number: US-ABBOTT-08P-163-0468668-00

PATIENT
  Sex: Female
  Weight: 93.524 kg

DRUGS (3)
  1. SYNTHROID [Suspect]
     Indication: THYROIDECTOMY
     Route: 048
     Dates: start: 19950101
  2. DYAZIDE [Concomitant]
     Indication: BLOOD PRESSURE
     Route: 048
     Dates: start: 20071013
  3. RABEPRAZOLE SODIUM [Concomitant]
     Indication: GASTROOESOPHAGEAL REFLUX DISEASE
     Route: 048
     Dates: start: 20080215

REACTIONS (5)
  - ALOPECIA [None]
  - SKIN DISCOLOURATION [None]
  - SKIN DISORDER [None]
  - SKIN REACTION [None]
  - TRICHORRHEXIS [None]
